FAERS Safety Report 20036016 (Version 3)
Quarter: 2021Q4

REPORT INFORMATION
  Report Type: Spontaneous
  Country: JP (occurrence: JP)
  Receive Date: 20211105
  Receipt Date: 20211121
  Transmission Date: 20220304
  Serious: Yes (Death, Hospitalization, Other)
  Sender: FDA-Public Use
  Company Number: JP-DSJP-DSJ-2021-134933

PATIENT
  Age: 80 Year
  Sex: Male
  Weight: 42 kg

DRUGS (2)
  1. BEVACIZUMAB [Suspect]
     Active Substance: BEVACIZUMAB
     Indication: Non-small cell lung cancer
     Dosage: 700 MILLIGRAM, Q3WK
     Route: 041
     Dates: start: 20210625, end: 20210806
  2. BEVACIZUMAB [Suspect]
     Active Substance: BEVACIZUMAB
     Dosage: 680 MILLIGRAM, Q3WK
     Route: 041
     Dates: start: 20210827, end: 20210917

REACTIONS (2)
  - Tracheal fistula [Fatal]
  - Hyponatraemia [Unknown]

NARRATIVE: CASE EVENT DATE: 20210921
